FAERS Safety Report 10852257 (Version 1)
Quarter: 2015Q1

REPORT INFORMATION
  Report Type: Spontaneous
  Country: US (occurrence: US)
  Receive Date: 20150222
  Receipt Date: 20150222
  Transmission Date: 20150721
  Serious: No
  Sender: FDA-Public Use
  Company Number: US-ALLERGAN-1425130US

PATIENT
  Age: 58 Year
  Sex: Male

DRUGS (2)
  1. BOTOX [Suspect]
     Active Substance: ONABOTULINUMTOXINA
     Indication: SKIN WRINKLING
     Dosage: 275 UNITS, SINGLE
     Dates: start: 201411, end: 201411
  2. BOTOX [Suspect]
     Active Substance: ONABOTULINUMTOXINA
     Indication: NEUROGENIC BLADDER
     Dosage: 300 UNITS, SINGLE
     Dates: start: 20140531, end: 20140531

REACTIONS (2)
  - Off label use [Unknown]
  - Drug ineffective [Unknown]

NARRATIVE: CASE EVENT DATE: 20140531
